FAERS Safety Report 4822751-7 (Version None)
Quarter: 2005Q4

REPORT INFORMATION
  Report Type: 
  Country: None (occurrence: None)
  Receive Date: 20051104
  Receipt Date: 20051101
  Transmission Date: 20060501
  Serious: Yes (Other)
  Sender: FDA-Public Use
  Company Number: 200509437

PATIENT
  Age: 50 Year
  Sex: Female
  Weight: 68 kg

DRUGS (8)
  1. STREPTASE [Suspect]
     Indication: MYOCARDIAL INFARCTION
     Dosage: 1.5 MIU DAILY IV
     Route: 042
     Dates: start: 20050721, end: 20050721
  2. ASPIRIN [Suspect]
     Indication: MYOCARDIAL INFARCTION
     Dosage: 300 MG DAILY PO
     Route: 048
     Dates: start: 20050721
  3. ENOXAPARIN SODIUM [Suspect]
     Indication: MYOCARDIAL INFARCTION
     Dates: start: 20050721, end: 20050721
  4. CLOPIDOGREL BISULFATE [Concomitant]
  5. NITROGLYCERIN [Concomitant]
  6. METOPROLOL [Concomitant]
  7. MORPHINE [Concomitant]
  8. PROCHLORPERAZINE [Concomitant]

REACTIONS (5)
  - CORONARY ARTERIAL STENT INSERTION [None]
  - CORONARY ARTERY DISSECTION [None]
  - DISEASE RECURRENCE [None]
  - MYOCARDIAL INFARCTION [None]
  - VENTRICULAR HYPOKINESIA [None]
